FAERS Safety Report 7370179-0 (Version None)
Quarter: 2011Q1

REPORT INFORMATION
  Report Type: 
  Country: None (occurrence: None)
  Receive Date: 20110323
  Receipt Date: 20100225
  Transmission Date: 20110831
  Serious: Yes (Hospitalization)
  Sender: FDA-Public Use
  Company Number: US-ASTRAZENECA-2010SE08256

PATIENT
  Age: 34 Year
  Sex: Female

DRUGS (6)
  1. LISINOPRIL [Suspect]
     Route: 048
  2. PROTONIX [Concomitant]
  3. HYDROCHLOROTHIAZIDE [Concomitant]
  4. IRON [Concomitant]
  5. NON-STEROIDAL ANTI-INFLAMMATORY DRUGS [Concomitant]
     Dosage: OCCASIONAL
  6. ORAL CONTRACEPTIVE [Concomitant]
     Route: 048

REACTIONS (1)
  - SMALL BOWEL ANGIOEDEMA [None]
